FAERS Safety Report 7549228-2 (Version None)
Quarter: 2011Q2

REPORT INFORMATION
  Report Type: 
  Country: None (occurrence: None)
  Receive Date: 20110615
  Receipt Date: 20110601
  Transmission Date: 20111010
  Serious: Yes (Hospitalization)
  Sender: FDA-Public Use
  Company Number: PHHY2011JP42911

PATIENT
  Age: 44 Year
  Sex: Male

DRUGS (1)
  1. TEGRETOL [Suspect]
     Indication: POST-TRAUMATIC EPILEPSY
     Dosage: 200 MG, TID
     Route: 048

REACTIONS (1)
  - LIVER DISORDER [None]
